FAERS Safety Report 7278633-7 (Version None)
Quarter: 2011Q1

REPORT INFORMATION
  Report Type: 
  Country: None (occurrence: None)
  Receive Date: 20110207
  Receipt Date: 20110203
  Transmission Date: 20110831
  Serious: No
  Sender: FDA-Public Use
  Company Number: US-PFIZER INC-2011025970

PATIENT
  Sex: Female

DRUGS (1)
  1. ADVIL [Suspect]
     Indication: NASAL CONGESTION
     Dosage: UNK
     Route: 048
     Dates: start: 20110203

REACTIONS (2)
  - MALAISE [None]
  - DRUG INEFFECTIVE [None]
